FAERS Safety Report 8689114 (Version 2)
Quarter: 2013Q1

REPORT INFORMATION
  Report Type: Spontaneous
  Country: US (occurrence: US)
  Receive Date: 20120727
  Receipt Date: 20130311
  Transmission Date: 20140127
  Serious: No
  Sender: FDA-Public Use
  Company Number: US-ASTRAZENECA-2011SE75026

PATIENT
  Age: 42 Year
  Sex: Female
  Weight: 75.8 kg

DRUGS (4)
  1. SEROQUEL [Suspect]
     Indication: SCHIZOPHRENIA
     Dosage: ONE IN THE MORNING AND THREE IN THE EVENING
     Route: 048
  2. SEROQUEL [Suspect]
     Indication: BIPOLAR I DISORDER
     Dosage: ONE IN THE MORNING AND THREE IN THE EVENING
     Route: 048
  3. SELEXA [Concomitant]
     Indication: DEPRESSION
  4. CARBANASAPINE [Concomitant]
     Indication: DEPRESSION

REACTIONS (7)
  - Diarrhoea [Unknown]
  - Personality disorder [Unknown]
  - Malaise [Unknown]
  - Insomnia [Unknown]
  - Abdominal discomfort [Unknown]
  - Pneumonia [Unknown]
  - Drug dose omission [Unknown]
